FAERS Safety Report 9499512 (Version 1)
Quarter: 2013Q1

REPORT INFORMATION
  Report Type: Spontaneous
  Country: US (occurrence: None)
  Receive Date: 20130107
  Receipt Date: 20130107
  Transmission Date: 20140127
  Serious: No
  Sender: FDA-Public Use
  Company Number: PHEH2012US020212

PATIENT
  Sex: 0

DRUGS (1)
  1. GILENYA [Suspect]
     Indication: MULTIPLE SCLEROSIS
     Route: 048
     Dates: start: 20120216

REACTIONS (7)
  - Speech disorder [None]
  - Feeling abnormal [None]
  - Gait disturbance [None]
  - Cognitive disorder [None]
  - Hypoaesthesia [None]
  - Drug dose omission [None]
  - Epistaxis [None]
